FAERS Safety Report 5280447-4 (Version None)
Quarter: 2007Q1

REPORT INFORMATION
  Report Type: 
  Country: None (occurrence: None)
  Receive Date: 20070329
  Receipt Date: 20070321
  Transmission Date: 20070707
  Serious: Yes (Hospitalization)
  Sender: FDA-Public Use
  Company Number: FR-AVENTIS-200711054FR

PATIENT
  Age: 84 Year
  Sex: Female

DRUGS (8)
  1. LASILIX                            /00032601/ [Suspect]
     Route: 048
     Dates: end: 20061107
  2. SINEMET [Suspect]
     Indication: PARKINSON'S DISEASE
     Route: 048
     Dates: end: 20061107
  3. INIPOMP                            /01263201/ [Suspect]
     Route: 048
     Dates: end: 20061107
  4. BI TILDIEM [Suspect]
     Route: 048
     Dates: end: 20061107
  5. PROZAC [Suspect]
     Route: 048
     Dates: end: 20061107
  6. DIFFU K [Concomitant]
     Route: 048
  7. DIGOXIN [Concomitant]
  8. PREVISCAN                          /00789001/ [Concomitant]

REACTIONS (3)
  - ABNORMAL BEHAVIOUR [None]
  - FALL [None]
  - ORTHOSTATIC HYPOTENSION [None]
